FAERS Safety Report 20557851 (Version 7)
Quarter: 2022Q2

REPORT INFORMATION
  Report Type: Other
  Country: CA (occurrence: None)
  Receive Date: 20220307
  Receipt Date: 20220622
  Transmission Date: 20220721
  Serious: No
  Sender: FDA-Public Use
  Company Number: CA-ROCHE-3040558

PATIENT
  Sex: Male

DRUGS (1)
  1. OCREVUS [Suspect]
     Active Substance: OCRELIZUMAB
     Indication: Relapsing-remitting multiple sclerosis
     Dosage: 300 MG AT DAY 0 AND 14, THEN 600 MG EVERY 6 MONTH
     Route: 042
     Dates: start: 20210909

REACTIONS (5)
  - Abdominal pain upper [Recovering/Resolving]
  - COVID-19 [Not Recovered/Not Resolved]
  - Infection [Recovered/Resolved]
  - Dacryocanaliculitis [Recovered/Resolved]
  - Migraine [Unknown]
